FAERS Safety Report 16970952 (Version 1)
Quarter: 2019Q4

REPORT INFORMATION
  Report Type: Spontaneous
  Country: US (occurrence: US)
  Receive Date: 20191028
  Receipt Date: 20191028
  Transmission Date: 20200122
  Serious: Yes (Life-Threatening, Other)
  Sender: FDA-Public Use
  Company Number: None

PATIENT
  Age: 72 Year
  Sex: Female
  Weight: 86.4 kg

DRUGS (2)
  1. DAPTOMYCIN. [Suspect]
     Active Substance: DAPTOMYCIN
     Indication: HIP ARTHROPLASTY
     Route: 041
     Dates: start: 20191001, end: 20191021
  2. DAPTOMYCIN. [Suspect]
     Active Substance: DAPTOMYCIN
     Indication: ARTHRITIS INFECTIVE
     Route: 041
     Dates: start: 20191001, end: 20191021

REACTIONS (1)
  - Eosinophilic pneumonia [None]

NARRATIVE: CASE EVENT DATE: 20191022
